FAERS Safety Report 11701630 (Version 1)
Quarter: 2015Q4

REPORT INFORMATION
  Report Type: Spontaneous
  Country: US (occurrence: US)
  Receive Date: 20151105
  Receipt Date: 20151105
  Transmission Date: 20160304
  Serious: Yes (Hospitalization)
  Sender: FDA-Public Use
  Company Number: US-ACTELION-A-NJ2015-126664

PATIENT
  Age: 81 Year
  Sex: Male

DRUGS (11)
  1. VALCHLOR [Suspect]
     Active Substance: MECHLORETHAMINE
     Indication: MYCOSIS FUNGOIDES
     Dosage: UNK, APPLY THIN FILM DAILY TO AREA
     Route: 061
     Dates: start: 201505
  2. LOVASTATIN. [Concomitant]
     Active Substance: LOVASTATIN
  3. ACYCLOVIR. [Concomitant]
     Active Substance: ACYCLOVIR
  4. AVODART [Concomitant]
     Active Substance: DUTASTERIDE
  5. DEXAMETHASONE. [Concomitant]
     Active Substance: DEXAMETHASONE
  6. CLOBETASOL [Concomitant]
     Active Substance: CLOBETASOL
  7. PLAVIX [Concomitant]
     Active Substance: CLOPIDOGREL BISULFATE
  8. PEPCID [Concomitant]
     Active Substance: FAMOTIDINE
  9. XANAX [Concomitant]
     Active Substance: ALPRAZOLAM
  10. CARDURA [Concomitant]
     Active Substance: DOXAZOSIN MESYLATE
  11. HYDROCHLOROTHIAZIDE. [Concomitant]
     Active Substance: HYDROCHLOROTHIAZIDE

REACTIONS (7)
  - Pelvic fracture [Unknown]
  - Acne [Unknown]
  - Upper limb fracture [Unknown]
  - Transfusion [Unknown]
  - Blood count abnormal [Unknown]
  - Skin fissures [Unknown]
  - Spinal compression fracture [Unknown]
